FAERS Safety Report 4885337-4 (Version None)
Quarter: 2006Q1

REPORT INFORMATION
  Report Type: 
  Country: None (occurrence: None)
  Receive Date: 20060119
  Receipt Date: 20060109
  Transmission Date: 20060701
  Serious: Yes (Hospitalization)
  Sender: FDA-Public Use
  Company Number: 2006UW00437

PATIENT
  Age: 76 Year
  Sex: Female

DRUGS (7)
  1. CRESTOR [Suspect]
     Route: 048
  2. GEMFIBROZIL [Concomitant]
  3. DETROL [Concomitant]
     Indication: MICTURITION URGENCY
  4. DETROL [Concomitant]
     Indication: INCONTINENCE
  5. LASIX [Concomitant]
  6. NAPROXEN [Concomitant]
  7. VERAPAMIL [Concomitant]

REACTIONS (2)
  - RENAL FAILURE ACUTE [None]
  - RHABDOMYOLYSIS [None]
